FAERS Safety Report 4334571-0 (Version None)
Quarter: 2004Q1

REPORT INFORMATION
  Report Type: 
  Country: None (occurrence: None)
  Receive Date: 20040329
  Receipt Date: 20031210
  Transmission Date: 20041129
  Serious: No
  Sender: FDA-Public Use
  Company Number: 03P-163-0244233-00

PATIENT
  Age: 61 Year
  Sex: Female
  Weight: 61.6892 kg

DRUGS (5)
  1. HUMIRA [Suspect]
     Indication: RHEUMATOID ARTHRITIS
     Dosage: 40 MG, 1 IN 2 WK, SUBCUTANEOUS
     Route: 058
     Dates: start: 20031125
  2. PACLITAXEL [Concomitant]
  3. LOVASTATIN [Concomitant]
  4. ENDUROL [Concomitant]
  5. BUCINDOLOL HYDROCHLORIDE [Concomitant]

REACTIONS (4)
  - DIZZINESS [None]
  - FEELING COLD [None]
  - HEADACHE [None]
  - NAUSEA [None]
